FAERS Safety Report 9526652 (Version 1)
Quarter: 2013Q3

REPORT INFORMATION
  Report Type: Spontaneous
  Country: US (occurrence: US)
  Receive Date: 20130916
  Receipt Date: 20130916
  Transmission Date: 20140515
  Serious: No
  Sender: FDA-Public Use
  Company Number: US-009507513-1309USA004092

PATIENT
  Sex: Female

DRUGS (2)
  1. NEXPLANON [Suspect]
     Dosage: 68 MG/ ONE ROD EVERY THREE YEARS
     Route: 059
     Dates: start: 20130220, end: 20130826
  2. NEXPLANON [Suspect]
     Dosage: UNK
     Route: 059
     Dates: start: 20130826

REACTIONS (2)
  - Device breakage [Recovered/Resolved]
  - No adverse event [Unknown]
